FAERS Safety Report 21658242 (Version 2)
Quarter: 2023Q1

REPORT INFORMATION
  Report Type: Spontaneous
  Country: JP (occurrence: JP)
  Receive Date: 20221129
  Receipt Date: 20230321
  Transmission Date: 20230418
  Serious: Yes (Hospitalization, Other)
  Sender: FDA-Public Use
  Company Number: JP-BAYER-2022A159628

PATIENT
  Age: 79 Year
  Sex: Male
  Weight: 56.8 kg

DRUGS (15)
  1. XOFIGO [Suspect]
     Active Substance: RADIUM RA-223 DICHLORIDE
     Indication: Hormone-refractory prostate cancer
     Dosage: 55 KBQ/KG, ONCE
     Route: 042
     Dates: start: 20220610, end: 20220610
  2. XOFIGO [Suspect]
     Active Substance: RADIUM RA-223 DICHLORIDE
     Indication: Metastases to bone
     Dosage: 55 KBQ/KG, ONCE
     Route: 042
     Dates: start: 20220708, end: 20220708
  3. XOFIGO [Suspect]
     Active Substance: RADIUM RA-223 DICHLORIDE
     Indication: Hormone-refractory prostate cancer
     Dosage: 55 KBQ/KG, ONCE
     Route: 042
     Dates: start: 20220805, end: 20220805
  4. XOFIGO [Suspect]
     Active Substance: RADIUM RA-223 DICHLORIDE
     Indication: Hormone-refractory prostate cancer
     Dosage: 55 KBQ/KG, ONCE
     Route: 042
     Dates: start: 20220905, end: 20220905
  5. XOFIGO [Suspect]
     Active Substance: RADIUM RA-223 DICHLORIDE
     Indication: Hormone-refractory prostate cancer
     Dosage: 55 KBQ/KG, ONCE
     Route: 042
     Dates: start: 20221003, end: 20221003
  6. ESTRAMUSTINE PHOSPHATE SODIUM [Suspect]
     Active Substance: ESTRAMUSTINE PHOSPHATE SODIUM
     Dosage: DAILY DOSE 626.8 MG
     Route: 048
     Dates: end: 20221108
  7. PREDONINE [Suspect]
     Active Substance: PREDNISOLONE
     Dosage: DAILY DOSE 10 MG
     Route: 048
     Dates: end: 20221108
  8. IPRAGLIFLOZIN L-PROLINE\SITAGLIPTIN PHOSPHATE [Concomitant]
     Active Substance: IPRAGLIFLOZIN L-PROLINE\SITAGLIPTIN PHOSPHATE
     Indication: Diabetes mellitus
     Dosage: DAILY DOSE 1 DF
     Route: 048
     Dates: end: 20221108
  9. METGLUCO [Concomitant]
     Active Substance: METFORMIN HYDROCHLORIDE
     Indication: Diabetes mellitus
     Dosage: DAILY DOSE 500 MG
     Route: 048
     Dates: end: 20221105
  10. MITIGLINIDE [Concomitant]
     Active Substance: MITIGLINIDE
     Indication: Diabetes mellitus
     Dosage: DAILY DOSE 30 MG
     Route: 048
     Dates: end: 20221107
  11. CLOPIDOGREL [Concomitant]
     Active Substance: CLOPIDOGREL BISULFATE
     Indication: Cerebral infarction
     Dosage: DAILY DOSE 75 MG
     Route: 048
     Dates: end: 20221107
  12. LANSOPRAZOLE [Concomitant]
     Active Substance: LANSOPRAZOLE
     Indication: Duodenal ulcer
     Dosage: DAILY DOSE 15 MG
     Route: 048
     Dates: end: 20221108
  13. AMITIZA [Concomitant]
     Active Substance: LUBIPROSTONE
     Dosage: DAILY DOSE 24 ?G
     Route: 048
     Dates: end: 20221105
  14. CALCIUM CARBONATE\CHOLECALCIFEROL\MAGNESIUM CARBONATE [Concomitant]
     Active Substance: CALCIUM CARBONATE\CHOLECALCIFEROL\MAGNESIUM CARBONATE
     Dosage: DAILY DOSE 1 DF
     Route: 048
  15. TAMSULOSIN HYDROCHLORIDE [Concomitant]
     Active Substance: TAMSULOSIN HYDROCHLORIDE
     Dosage: DAILY DOSE 0.2 MG
     Route: 048

REACTIONS (6)
  - Cardiac failure acute [None]
  - Pneumonia [None]
  - Hyperglycaemic hyperosmolar nonketotic syndrome [None]
  - Peripheral artery occlusion [None]
  - Dry gangrene [None]
  - Blister [None]

NARRATIVE: CASE EVENT DATE: 20221030
